FAERS Safety Report 8239780-6 (Version None)
Quarter: 2012Q1

REPORT INFORMATION
  Report Type: 
  Country: None (occurrence: None)
  Receive Date: 20120328
  Receipt Date: 20120322
  Transmission Date: 20120608
  Serious: No
  Sender: FDA-Public Use
  Company Number: US-B.I. PHARMACEUTICALS,INC./RIDGEFIELD-2012-BP-01281BP

PATIENT
  Sex: Female

DRUGS (5)
  1. LEVOXYL [Concomitant]
     Dates: start: 20070328
  2. MICARDIS [Suspect]
     Indication: BLOOD PRESSURE
     Dosage: 20 MG
     Dates: end: 20111229
  3. TYLENOL [Concomitant]
  4. MICARDIS [Suspect]
     Indication: HYPERTENSION
  5. EXCEDRIN (MIGRAINE) [Suspect]

REACTIONS (9)
  - DYSPNOEA [None]
  - COLD SWEAT [None]
  - PALPITATIONS [None]
  - CHEST DISCOMFORT [None]
  - DIZZINESS [None]
  - TACHYCARDIA [None]
  - HEADACHE [None]
  - ILL-DEFINED DISORDER [None]
  - NAUSEA [None]
